FAERS Safety Report 14382746 (Version 2)
Quarter: 2018Q1

REPORT INFORMATION
  Report Type: Report from Study
  Country: SG (occurrence: SG)
  Receive Date: 20180112
  Receipt Date: 20180115
  Transmission Date: 20180509
  Serious: Yes (Hospitalization, Other)
  Sender: FDA-Public Use
  Company Number: SG-VISTAPHARM, INC.-VER201801-000019

PATIENT
  Age: 36 Year
  Sex: Male

DRUGS (1)
  1. HYDROCODONE AND ACETAMINOPHEN [Suspect]
     Active Substance: ACETAMINOPHEN\HYDROCODONE
     Indication: MIGRAINE

REACTIONS (5)
  - Hepatitis [Unknown]
  - Gastroenteritis [Unknown]
  - Hepatotoxicity [Unknown]
  - Overdose [Unknown]
  - Sepsis [Unknown]
